FAERS Safety Report 18430337 (Version 3)
Quarter: 2020Q4

REPORT INFORMATION
  Report Type: Spontaneous
  Country: BR (occurrence: BR)
  Receive Date: 20201026
  Receipt Date: 20201111
  Transmission Date: 20210114
  Serious: Yes (Hospitalization, Other)
  Sender: FDA-Public Use
  Company Number: BR-ASTRAZENECA-2020SF37599

PATIENT
  Sex: Female

DRUGS (1)
  1. XIGDUO XR [Suspect]
     Active Substance: DAPAGLIFLOZIN PROPANEDIOL\METFORMIN HYDROCHLORIDE
     Dosage: 10/1000 MG
     Route: 048
     Dates: start: 2015, end: 20201103

REACTIONS (2)
  - Bladder cancer [Not Recovered/Not Resolved]
  - Bladder cancer recurrent [Unknown]

NARRATIVE: CASE EVENT DATE: 201904
